FAERS Safety Report 4262913-3 (Version None)
Quarter: 2004Q1

REPORT INFORMATION
  Report Type: 
  Country: None (occurrence: None)
  Receive Date: 20040105
  Receipt Date: 20031224
  Transmission Date: 20041129
  Serious: Yes (Other)
  Sender: FDA-Public Use
  Company Number: US-BRISTOL-MYERS SQUIBB COMPANY-12465035

PATIENT
  Age: 67 Year
  Sex: Female

DRUGS (5)
  1. ATENOLOL TABS 50 MG [Suspect]
     Indication: HYPERTENSION
     Route: 048
  2. PLAVIX [Suspect]
     Indication: STENT PLACEMENT
     Route: 048
     Dates: start: 20031120
  3. VASOTEC [Suspect]
     Indication: HYPERTENSION
     Route: 048
  4. LASIX [Suspect]
     Indication: DIURETIC THERAPY
     Route: 048
  5. INSULIN [Suspect]
     Indication: DIABETES MELLITUS
     Route: 058

REACTIONS (3)
  - ANGIONEUROTIC OEDEMA [None]
  - DRUG INTERACTION [None]
  - INSOMNIA [None]
